FAERS Safety Report 7443515-4 (Version None)
Quarter: 2011Q2

REPORT INFORMATION
  Report Type: 
  Country: None (occurrence: None)
  Receive Date: 20110428
  Receipt Date: 20110413
  Transmission Date: 20111010
  Serious: No
  Sender: FDA-Public Use
  Company Number: US-B.I. PHARMACEUTICALS,INC./RIDGEFIELD-2011-BP-10845BP

PATIENT
  Sex: Male

DRUGS (3)
  1. ALBUTEROL [Concomitant]
     Indication: PNEUMONIA
  2. ADVAIR DISKUS 100/50 [Concomitant]
     Indication: PNEUMONIA
  3. SPIRIVA [Suspect]
     Indication: PNEUMONIA
     Dosage: 18 MCG
     Route: 055
     Dates: start: 20110108

REACTIONS (2)
  - ALOPECIA [None]
  - DYSPHONIA [None]
